FAERS Safety Report 17749249 (Version 1)
Quarter: 2020Q2

REPORT INFORMATION
  Report Type: Spontaneous
  Country: CA (occurrence: CA)
  Receive Date: 20200506
  Receipt Date: 20200506
  Transmission Date: 20200714
  Serious: Yes (Hospitalization, Other)
  Sender: FDA-Public Use
  Company Number: CA-PFIZER INC-2020178582

PATIENT
  Age: 59 Year
  Sex: Female
  Weight: 68 kg

DRUGS (3)
  1. SPIRIVA [Concomitant]
     Active Substance: TIOTROPIUM BROMIDE MONOHYDRATE
     Dosage: UNK
  2. VENTOLIN [Concomitant]
     Active Substance: ALBUTEROL SULFATE
     Dosage: UNK
  3. CHAMPIX [Suspect]
     Active Substance: VARENICLINE TARTRATE
     Dosage: 1 MG, 2X/DAY
     Route: 048

REACTIONS (7)
  - Cerebral infarction [Recovering/Resolving]
  - Magnetic resonance imaging brain abnormal [Recovering/Resolving]
  - Walking disability [Recovering/Resolving]
  - Fall [Recovering/Resolving]
  - Sensory loss [Recovering/Resolving]
  - Coordination abnormal [Recovering/Resolving]
  - Hypoaesthesia [Recovering/Resolving]
